FAERS Safety Report 4546563-7 (Version None)
Quarter: 2005Q1

REPORT INFORMATION
  Report Type: 
  Country: None (occurrence: None)
  Receive Date: 20050103
  Receipt Date: 20041223
  Transmission Date: 20050727
  Serious: Yes (Hospitalization)
  Sender: FDA-Public Use
  Company Number: CIP04002758

PATIENT
  Age: 81 Year
  Sex: Male

DRUGS (7)
  1. FURADANTIN [Suspect]
     Indication: URINARY TRACT INFECTION BACTERIAL
     Dosage: 1 CAPSUL DAILY, ORAL
     Route: 048
     Dates: start: 20041021, end: 20041125
  2. PREVISCAN (FLUINDIONE) TABLET, 20 MG [Suspect]
     Dosage: 1 TABLET DAILY, ORAL
     Route: 048
     Dates: start: 20040929, end: 20041127
  3. ZOCOR [Suspect]
     Dosage: ORAL
     Route: 048
     Dates: start: 20040915, end: 20041127
  4. XATRAL/FRA/(ALFUZOSIN) [Suspect]
     Dosage: ORAL
     Route: 048
     Dates: end: 20041127
  5. NEURONTIN [Suspect]
     Indication: NEUROPATHY
     Dosage: ORAL
     Route: 048
     Dates: start: 19980615, end: 20041127
  6. ENALAPRIL MALEATE [Concomitant]
  7. VACCINES [Concomitant]

REACTIONS (8)
  - CUTANEOUS VASCULITIS [None]
  - INFLAMMATION [None]
  - LEUKOCYTOCLASTIC VASCULITIS [None]
  - PAIN OF SKIN [None]
  - STAPHYLOCOCCAL INFECTION [None]
  - URINARY TRACT INFECTION [None]
  - VASCULAR PURPURA [None]
  - VASCULITIS NECROTISING [None]
